FAERS Safety Report 9293147 (Version 2)
Quarter: 2013Q2

REPORT INFORMATION
  Report Type: Spontaneous
  Country: US (occurrence: None)
  Receive Date: 20130514
  Receipt Date: 20130627
  Transmission Date: 20140414
  Serious: Yes (Hospitalization, Other)
  Sender: FDA-Public Use
  Company Number: 2013P1005576

PATIENT
  Age: 55 Year
  Sex: Female

DRUGS (14)
  1. INFUMORPH [Suspect]
     Indication: PAIN
     Route: 037
     Dates: end: 20130505
  2. INFUMORPH [Suspect]
     Indication: PAIN
     Route: 037
     Dates: end: 20130505
  3. INFUMORPH [Suspect]
     Route: 037
     Dates: end: 20130505
  4. PROVENTIL OR VENTOLIN [Concomitant]
  5. LIPITOR [Concomitant]
  6. CALCIUM CARBONATE [Concomitant]
  7. CELEBREX [Concomitant]
  8. VITAMIN D3 [Concomitant]
  9. FIBER CAPS [Concomitant]
  10. NORCO [Concomitant]
  11. SINGULAIR [Concomitant]
  12. PRILOSEC [Concomitant]
  13. NOLVADEX [Concomitant]
  14. THERAGRAN-M [Concomitant]

REACTIONS (5)
  - Pyrexia [None]
  - Headache [None]
  - Pain [None]
  - Device kink [None]
  - Implant site effusion [None]
